FAERS Safety Report 17217176 (Version 3)
Quarter: 2022Q1

REPORT INFORMATION
  Report Type: Spontaneous
  Country: FR (occurrence: FR)
  Receive Date: 20191231
  Receipt Date: 20220128
  Transmission Date: 20220423
  Serious: Yes (Hospitalization, Other)
  Sender: FDA-Public Use
  Company Number: FR-VIIV HEALTHCARE LIMITED-FR2019GSK216887AA

PATIENT
  Age: 43 Year
  Sex: Male

DRUGS (12)
  1. DARUNAVIR [Suspect]
     Active Substance: DARUNAVIR
     Indication: HIV infection
     Dosage: 800 MILLIGRAM, ONCE A DAY
     Route: 065
  2. ABACAVIR SULFATE\LAMIVUDINE [Suspect]
     Active Substance: ABACAVIR SULFATE\LAMIVUDINE
     Indication: HIV infection
     Dosage: 1 DOSAGE FORM, ONCE A DAY (600/300MG)
     Route: 065
  3. ETHAMBUTOL [Suspect]
     Active Substance: ETHAMBUTOL HYDROCHLORIDE
     Indication: Tuberculosis
     Dosage: UNK
     Route: 065
     Dates: start: 201808
  4. ETHAMBUTOL [Suspect]
     Active Substance: ETHAMBUTOL HYDROCHLORIDE
     Indication: Antibiotic prophylaxis
  5. ISONIAZID [Suspect]
     Active Substance: ISONIAZID
     Indication: Tuberculosis
     Dosage: UNK
     Route: 065
     Dates: start: 201808
  6. ISONIAZID [Suspect]
     Active Substance: ISONIAZID
     Indication: Antibiotic prophylaxis
  7. PYRAZINAMIDE [Suspect]
     Active Substance: PYRAZINAMIDE
     Indication: Tuberculosis
     Dosage: UNK
     Route: 065
     Dates: start: 201808
  8. PYRAZINAMIDE [Suspect]
     Active Substance: PYRAZINAMIDE
     Indication: HIV infection
  9. RIFAMPIN [Suspect]
     Active Substance: RIFAMPIN
     Indication: Tuberculosis
     Dosage: UNK
     Route: 065
     Dates: start: 201808
  10. RIFAMPIN [Suspect]
     Active Substance: RIFAMPIN
     Indication: Antibiotic prophylaxis
  11. RITONAVIR [Suspect]
     Active Substance: RITONAVIR
     Indication: HIV infection
     Dosage: 100 MILLIGRAM, ONCE A DAY
     Route: 065
  12. COTRIMOXAZOLE [Concomitant]
     Active Substance: SULFAMETHOXAZOLE\TRIMETHOPRIM
     Indication: HIV infection
     Dosage: 800 MILLIGRAM, ONCE A DAY
     Route: 065

REACTIONS (16)
  - Osteolysis [Unknown]
  - Hyperhidrosis [Recovered/Resolved]
  - Lymphadenopathy [Recovered/Resolved]
  - C-reactive protein increased [Recovered/Resolved]
  - Immune reconstitution inflammatory syndrome associated tuberculosis [Recovering/Resolving]
  - Pulmonary sequestration [Unknown]
  - Hypermetabolism [Unknown]
  - General physical health deterioration [Unknown]
  - Testicular mass [Unknown]
  - Emphysema [Unknown]
  - Diaphragmatic disorder [Unknown]
  - Pyrexia [Recovered/Resolved]
  - Immune reconstitution inflammatory syndrome [Recovering/Resolving]
  - Drug ineffective [Unknown]
  - Paradoxical drug reaction [Recovering/Resolving]
  - Tuberculosis [Recovering/Resolving]
